FAERS Safety Report 13413167 (Version 1)
Quarter: 2017Q2

REPORT INFORMATION
  Report Type: Spontaneous
  Country: GB (occurrence: GB)
  Receive Date: 20170407
  Receipt Date: 20170407
  Transmission Date: 20170830
  Serious: Yes (Other)
  Sender: FDA-Public Use
  Company Number: GB-TEVA-754669ACC

PATIENT
  Age: 52 Year
  Sex: Female
  Weight: 68.48 kg

DRUGS (4)
  1. RAMIPRIL. [Concomitant]
     Active Substance: RAMIPRIL
  2. TRIMETHOPRIM. [Suspect]
     Active Substance: TRIMETHOPRIM
     Indication: URINARY TRACT INFECTION
     Dosage: 6 TAKEN IN TOTAL.
     Route: 048
     Dates: start: 20170310, end: 20170313
  3. WARFARIN [Concomitant]
     Active Substance: WARFARIN
  4. ATORVASTATIN [Concomitant]
     Active Substance: ATORVASTATIN

REACTIONS (12)
  - Blood urine present [Unknown]
  - White blood cells urine [Unknown]
  - Body temperature decreased [Unknown]
  - Hallucination [Not Recovered/Not Resolved]
  - Anxiety [Not Recovered/Not Resolved]
  - Hyperacusis [Not Recovered/Not Resolved]
  - Paraesthesia [Unknown]
  - Nightmare [Not Recovered/Not Resolved]
  - Chills [Unknown]
  - Photophobia [Not Recovered/Not Resolved]
  - Pyrexia [Unknown]
  - Paranoia [Not Recovered/Not Resolved]

NARRATIVE: CASE EVENT DATE: 20170310
